FAERS Safety Report 6355161-4 (Version None)
Quarter: 2009Q3

REPORT INFORMATION
  Report Type: 
  Country: None (occurrence: None)
  Receive Date: 20090909
  Receipt Date: 20090824
  Transmission Date: 20100115
  Serious: Yes (Hospitalization)
  Sender: FDA-Public Use
  Company Number: DSA_40521_2009

PATIENT
  Age: 78 Year
  Sex: Female

DRUGS (5)
  1. ENALAPRIL MALEATE [Suspect]
     Indication: HYPERTENSION
     Dosage: (20 MG QD ORAL)
     Route: 048
     Dates: start: 20090101, end: 20090620
  2. LANSOPRAZOLE [Concomitant]
  3. FOLIC ACID [Concomitant]
  4. DIBASE [Concomitant]
  5. ELOPRAM /00582601/ [Concomitant]

REACTIONS (3)
  - HYPOTENSION [None]
  - METABOLIC ACIDOSIS [None]
  - RENAL FAILURE ACUTE [None]
